FAERS Safety Report 13581545 (Version 1)
Quarter: 2017Q2

REPORT INFORMATION
  Report Type: Spontaneous
  Country: US (occurrence: US)
  Receive Date: 20170525
  Receipt Date: 20170525
  Transmission Date: 20170830
  Serious: Yes (Other)
  Sender: FDA-Public Use
  Company Number: US-DRREDDYS-USA/USA/17/0090820

PATIENT
  Age: 84 Year
  Sex: Female

DRUGS (2)
  1. RANITIDINE TABLETS 75 MG [Suspect]
     Active Substance: RANITIDINE
     Indication: GASTROOESOPHAGEAL REFLUX DISEASE
     Route: 048
     Dates: start: 201608
  2. RANITIDINE TABLETS 75 MG [Suspect]
     Active Substance: RANITIDINE
     Indication: HIATUS HERNIA

REACTIONS (4)
  - Headache [Unknown]
  - Blood pressure increased [Not Recovered/Not Resolved]
  - Joint swelling [Unknown]
  - Fall [Unknown]
